FAERS Safety Report 17278533 (Version 1)
Quarter: 2020Q1

REPORT INFORMATION
  Report Type: Spontaneous
  Country: BR (occurrence: BR)
  Receive Date: 20200116
  Receipt Date: 20200116
  Transmission Date: 20200409
  Serious: Yes (Other)
  Sender: FDA-Public Use
  Company Number: BR-JNJFOC-20191106015

PATIENT
  Sex: Female
  Weight: 86 kg

DRUGS (1)
  1. INFLIXIMAB, RECOMBINANT [Suspect]
     Active Substance: INFLIXIMAB
     Indication: ANKYLOSING SPONDYLITIS
     Route: 042
     Dates: end: 20180103

REACTIONS (3)
  - Gallbladder operation [Not Recovered/Not Resolved]
  - Inappropriate schedule of product administration [Unknown]
  - Post procedural inflammation [Not Recovered/Not Resolved]
